FAERS Safety Report 10103177 (Version 2)
Quarter: 2014Q2

REPORT INFORMATION
  Report Type: Spontaneous
  Country: US (occurrence: US)
  Receive Date: 20140424
  Receipt Date: 20140424
  Transmission Date: 20141212
  Serious: No
  Sender: FDA-Public Use
  Company Number: US-BRISTOL-MYERS SQUIBB COMPANY-20153789

PATIENT
  Age: 85 Year
  Sex: Male
  Weight: 79.36 kg

DRUGS (13)
  1. ELIQUIS [Suspect]
     Indication: ATRIAL FIBRILLATION
     Dosage: DOSE INCREASED TO 5MG,2 PER DAY?2J69969A,EXPI:2015?2.5 MG
     Dates: start: 20140103, end: 20140104
  2. LASIX [Concomitant]
  3. POTASSIUM [Concomitant]
  4. AMIODARONE [Concomitant]
  5. ENDUR-ACIN [Concomitant]
  6. DIOVAN [Concomitant]
  7. AMILORIDE [Concomitant]
  8. CARVEDILOL [Concomitant]
  9. ATORVASTATIN [Concomitant]
     Dosage: 1DF: 20 UNIT:NOS
  10. BABY ASPIRIN [Concomitant]
  11. NORVASC [Concomitant]
  12. MAGNESIUM [Concomitant]
  13. FOLIC ACID [Concomitant]

REACTIONS (3)
  - Haemorrhage [Unknown]
  - Contusion [Unknown]
  - Tooth disorder [Unknown]
